FAERS Safety Report 12503528 (Version 1)
Quarter: 2016Q2

REPORT INFORMATION
  Report Type: Spontaneous
  Country: US (occurrence: None)
  Receive Date: 20160627
  Receipt Date: 20160627
  Transmission Date: 20160815
  Serious: Yes (Hospitalization)
  Sender: FDA-Public Use
  Company Number: None

PATIENT
  Weight: 67.5 kg

DRUGS (1)
  1. NORTRIPTYLINE [Suspect]
     Active Substance: NORTRIPTYLINE
     Indication: DEPRESSION
     Route: 048
     Dates: start: 20160227, end: 20160301

REACTIONS (3)
  - Hypersensitivity [None]
  - Rash [None]
  - Hallucination [None]

NARRATIVE: CASE EVENT DATE: 20160229
